FAERS Safety Report 6394023-3 (Version None)
Quarter: 2009Q4

REPORT INFORMATION
  Report Type: 
  Country: None (occurrence: None)
  Receive Date: 20091008
  Receipt Date: 20090925
  Transmission Date: 20100525
  Serious: Yes (Hospitalization)
  Sender: FDA-Public Use
  Company Number: PHHY2009CA23046

PATIENT
  Sex: Male

DRUGS (13)
  1. EXJADE [Suspect]
     Indication: MYELODYSPLASTIC SYNDROME
     Dosage: 1875 MG/DAY
     Route: 048
     Dates: start: 20090213
  2. EXJADE [Suspect]
     Indication: IRON OVERLOAD
  3. ASPIRIN [Concomitant]
     Dosage: 81 MG PER DAY
  4. PREVEX [Concomitant]
  5. INSULIN [Concomitant]
  6. ACEBUTOLOL [Concomitant]
  7. AMLODIPINE [Concomitant]
  8. CLOPIDOGREL [Concomitant]
  9. FUROSEMIDE [Concomitant]
  10. GLICLAZIDE [Concomitant]
  11. METFORMIN HYDROCHLORIDE [Concomitant]
  12. PIOGLITAZONE [Concomitant]
  13. RAMIPRIL [Concomitant]

REACTIONS (6)
  - ANGIOGRAM [None]
  - ANGIOPLASTY [None]
  - CORONARY ARTERY BYPASS [None]
  - IMPAIRED HEALING [None]
  - INFECTION [None]
  - SKIN ULCER [None]
